FAERS Safety Report 22325740 (Version 2)
Quarter: 2023Q2

REPORT INFORMATION
  Report Type: Other
  Country: ES (occurrence: ES)
  Receive Date: 20230516
  Receipt Date: 20230519
  Transmission Date: 20230721
  Serious: Yes (Life-Threatening, Other)
  Sender: FDA-Public Use
  Company Number: None

PATIENT
  Age: 70 Year
  Sex: Male

DRUGS (8)
  1. ENZALUTAMIDE [Suspect]
     Active Substance: ENZALUTAMIDE
     Indication: Prostate cancer
     Dosage: 160 MG, ONCE DAILY (EVERY 24 HOURS)
     Route: 048
     Dates: start: 20220607
  2. CIPROFLOXACIN [Concomitant]
     Active Substance: CIPROFLOXACIN
     Indication: Urinary tract infection
     Route: 048
     Dates: start: 20230406, end: 20230412
  3. DECAPEPTYL TRIMESTRAL [Concomitant]
     Indication: Prostate cancer
     Dosage: 11.25 MG, UNKNOWN FREQ. (EVERY 3 MONTHS)
     Route: 030
     Dates: start: 20191023
  4. DEXKETOPROFEN TROMETAMOL [Concomitant]
     Active Substance: DEXKETOPROFEN TROMETAMOL
     Indication: Pyrexia
     Dosage: 25 MG, UNKNOWN FREQ. (BREAKFAT, LUNCH, DINNER)
     Route: 048
     Dates: start: 20230421, end: 20230423
  5. ACETAMINOPHEN [Concomitant]
     Active Substance: ACETAMINOPHEN
     Indication: Pyrexia
     Dosage: 1 G, UNKNOWN FREQ.(BREAKFAST, LUNCH, DINNER)
     Route: 048
     Dates: start: 20230421, end: 20230423
  6. PREDNISONE [Concomitant]
     Active Substance: PREDNISONE
     Indication: Back pain
     Dosage: 30 MG, UNKNOWN FREQ.(AT BREAKFAST)
     Route: 048
     Dates: start: 20230422
  7. CEFUROXIME [Concomitant]
     Active Substance: CEFUROXIME
     Indication: Urinary tract infection
     Route: 048
     Dates: start: 20230421
  8. ROBAXIN [Concomitant]
     Active Substance: METHOCARBAMOL
     Indication: Back pain
     Route: 048
     Dates: start: 20230421

REACTIONS (1)
  - Haemolytic uraemic syndrome [Unknown]

NARRATIVE: CASE EVENT DATE: 20230425
